FAERS Safety Report 24391611 (Version 1)
Quarter: 2024Q4

REPORT INFORMATION
  Report Type: Spontaneous
  Country: US (occurrence: None)
  Receive Date: 20241002
  Receipt Date: 20241002
  Transmission Date: 20250115
  Serious: No
  Sender: Public
  Company Number: None

PATIENT
  Age: 78 Year
  Sex: Male
  Weight: 89 kg

DRUGS (2)
  1. APIXABAN [Suspect]
     Active Substance: APIXABAN
     Indication: Atrial fibrillation
  2. DABIGATRAN [Suspect]
     Active Substance: DABIGATRAN

REACTIONS (5)
  - Haemorrhage [None]
  - Urinary tract infection [None]
  - Urinary bladder haemorrhage [None]
  - Therapy interrupted [None]
  - Haematuria [None]

NARRATIVE: CASE EVENT DATE: 20240301
